FAERS Safety Report 20255874 (Version 1)
Quarter: 2021Q4

REPORT INFORMATION
  Report Type: Spontaneous
  Country: US (occurrence: US)
  Receive Date: 20211230
  Receipt Date: 20211230
  Transmission Date: 20220303
  Serious: Yes (Other)
  Sender: FDA-Public Use
  Company Number: US-GLAXOSMITHKLINE-US2021GSK264105

PATIENT
  Sex: Male

DRUGS (2)
  1. ZANTAC [Suspect]
     Active Substance: RANITIDINE HYDROCHLORIDE
     Indication: Duodenal ulcer
     Dosage: UNK UNK, QD
     Route: 065
     Dates: start: 198501, end: 199401
  2. ZANTAC [Suspect]
     Active Substance: RANITIDINE HYDROCHLORIDE
     Indication: Duodenal ulcer
     Dosage: UNK UNK, QD
     Route: 065
     Dates: start: 198501, end: 199401

REACTIONS (2)
  - Gastrointestinal carcinoma [Unknown]
  - Renal cancer [Unknown]
